FAERS Safety Report 18711440 (Version 1)
Quarter: 2021Q1

REPORT INFORMATION
  Report Type: Spontaneous
  Country: US (occurrence: US)
  Receive Date: 20210107
  Receipt Date: 20210107
  Transmission Date: 20210419
  Serious: Yes (Death)
  Sender: FDA-Public Use
  Company Number: US-BAYER-2021-000161

PATIENT
  Age: 63 Year
  Sex: Female

DRUGS (4)
  1. DIPHENHYDRAMINE. [Suspect]
     Active Substance: DIPHENHYDRAMINE
  2. LINAGLIPTIN;METFORMIN [Suspect]
     Active Substance: LINAGLIPTIN\METFORMIN HYDROCHLORIDE
  3. PARACETAMOL [Suspect]
     Active Substance: ACETAMINOPHEN
  4. BENZONATATE. [Suspect]
     Active Substance: BENZONATATE

REACTIONS (1)
  - Toxicity to various agents [Fatal]
